FAERS Safety Report 24917857 (Version 1)
Quarter: 2025Q1

REPORT INFORMATION
  Report Type: Report from Study
  Country: ES (occurrence: ES)
  Receive Date: 20250203
  Receipt Date: 20250203
  Transmission Date: 20250409
  Serious: Yes (Hospitalization)
  Sender: TAKEDA
  Company Number: ES-JNJFOC-20250176165

PATIENT
  Age: 81 Year
  Sex: Male
  Weight: 80 kg

DRUGS (2)
  1. BORTEZOMIB [Suspect]
     Active Substance: BORTEZOMIB
     Indication: Plasma cell myeloma
     Dosage: 2.47 MILLIGRAM, MONTHLY
     Dates: start: 20220606, end: 20240711
  2. DARATUMUMAB\HYALURONIDASE-FIHJ [Suspect]
     Active Substance: DARATUMUMAB\HYALURONIDASE-FIHJ
     Indication: Plasma cell myeloma
     Dosage: 1800 MILLIGRAM, MONTHLY
     Dates: start: 20220606, end: 20241114

REACTIONS (1)
  - Respiratory syncytial virus infection [Recovered/Resolved]

NARRATIVE: CASE EVENT DATE: 20241209
